FAERS Safety Report 5647915-4 (Version None)
Quarter: 2008Q1

REPORT INFORMATION
  Report Type: 
  Country: None (occurrence: None)
  Receive Date: 20080303
  Receipt Date: 20080212
  Transmission Date: 20080703
  Serious: Yes (Other)
  Sender: FDA-Public Use
  Company Number: DK-PFIZER INC-2008018609

PATIENT
  Sex: Female

DRUGS (3)
  1. LYRICA [Suspect]
     Indication: GENERALISED ANXIETY DISORDER
     Route: 048
  2. QUETIAPINE FUMARATE [Concomitant]
  3. VENLAFAXINE HYDROCHLORIDE [Concomitant]

REACTIONS (2)
  - HYPERTENSION [None]
  - SOMNOLENCE [None]
